FAERS Safety Report 9728920 (Version 2)
Quarter: 2013Q4

REPORT INFORMATION
  Report Type: Spontaneous
  Country: JP (occurrence: JP)
  Receive Date: 20131204
  Receipt Date: 20131230
  Transmission Date: 20140711
  Serious: Yes (Hospitalization)
  Sender: FDA-Public Use
  Company Number: JP-PFIZER INC-2013344554

PATIENT
  Age: 53 Year
  Sex: Male
  Weight: 61 kg

DRUGS (10)
  1. ZOSYN [Suspect]
     Indication: CHOLANGITIS
     Dosage: 4.5 G, 3X/DAY
     Route: 041
     Dates: start: 20130704, end: 20130714
  2. ZOSYN [Suspect]
     Dosage: 4.5 G, 2X/DAY
     Route: 041
     Dates: start: 20130715, end: 20130723
  3. ZOSYN [Suspect]
     Dosage: 4.5 G, 3X/DAY
     Route: 041
     Dates: start: 20130724, end: 20130728
  4. ZOSYN [Suspect]
     Dosage: 2.25 G, 3X/DAY
     Route: 041
     Dates: start: 20130729, end: 20130802
  5. VANCOMYCIN [Suspect]
     Indication: CHOLANGITIS
     Dosage: 1000 - 3000MG, DAILY
     Route: 041
     Dates: start: 20130710, end: 20130714
  6. VANCOMYCIN [Suspect]
     Dosage: 500 - 1500MG, DAILY
     Route: 041
     Dates: start: 20130720, end: 20130730
  7. ALESION [Concomitant]
     Dosage: UNK
     Route: 048
  8. URSO [Concomitant]
     Dosage: UNK
     Route: 048
  9. PARIET [Concomitant]
     Dosage: UNK
     Route: 048
  10. HEPARIN SODIUM [Concomitant]
     Dosage: UNK

REACTIONS (1)
  - Platelet count decreased [Not Recovered/Not Resolved]
